FAERS Safety Report 8258626-3 (Version None)
Quarter: 2012Q2

REPORT INFORMATION
  Report Type: 
  Country: None (occurrence: None)
  Receive Date: 20120404
  Receipt Date: 20120327
  Transmission Date: 20120825
  Serious: Yes (Death, Other)
  Sender: FDA-Public Use
  Company Number: JP-BRISTOL-MYERS SQUIBB COMPANY-16417933

PATIENT
  Age: 75 Year
  Sex: Male

DRUGS (5)
  1. IRBESARTAN [Suspect]
     Indication: HYPERTENSION
     Dosage: TABS
     Route: 048
     Dates: start: 20110305
  2. PLAVIX [Concomitant]
     Indication: ANGINA PECTORIS
     Route: 048
     Dates: start: 20111020
  3. ASPIRIN [Concomitant]
     Indication: ANGINA PECTORIS
     Dosage: 09APR-19OCT11,100MG 20OCT11-UNK,200MG
     Route: 048
     Dates: start: 20110409
  4. CRESTOR [Suspect]
     Indication: DYSLIPIDAEMIA
     Dosage: TAKEN ON 12FEB2012
     Route: 048
     Dates: start: 20100409
  5. LANSOPRAZOLE [Concomitant]
     Indication: ANGINA PECTORIS
     Route: 048
     Dates: start: 20111020

REACTIONS (3)
  - RHABDOMYOLYSIS [None]
  - VIRAL INFECTION [None]
  - TOXIC SKIN ERUPTION [None]
